FAERS Safety Report 6176841-X (Version None)
Quarter: 2009Q2

REPORT INFORMATION
  Report Type: 
  Country: None (occurrence: None)
  Receive Date: 20090501
  Receipt Date: 20090430
  Transmission Date: 20091009
  Serious: Yes (Death, Other)
  Sender: FDA-Public Use
  Company Number: PHEH2006US04222

PATIENT
  Sex: Male
  Weight: 92.971 kg

DRUGS (6)
  1. ZOMETA [Suspect]
     Indication: LUNG NEOPLASM MALIGNANT
     Dosage: UNK, Q 4 WEEKS
  2. ZOMETA [Suspect]
     Indication: METASTASES TO BONE
  3. SANDOSTATIN [Concomitant]
     Dosage: UNK
     Dates: end: 20020401
  4. RADIOTHERAPY [Concomitant]
  5. MORPHINE SULFATE [Concomitant]
     Indication: PAIN
     Dosage: 30 MG, TID
  6. LIPITOR [Concomitant]

REACTIONS (21)
  - ADRENAL CARCINOMA [None]
  - ANXIETY [None]
  - ARTHRITIS [None]
  - ASCITES [None]
  - BACK PAIN [None]
  - BONE DISORDER [None]
  - BONE PAIN [None]
  - CARDIO-RESPIRATORY ARREST [None]
  - DYSPHAGIA [None]
  - EMOTIONAL DISTRESS [None]
  - GINGIVAL BLEEDING [None]
  - METASTASES TO BONE [None]
  - METASTASES TO SPINE [None]
  - ORAL SURGERY [None]
  - OSTEONECROSIS [None]
  - PAIN [None]
  - PORTAL HYPERTENSION [None]
  - SCAR [None]
  - STOMATITIS NECROTISING [None]
  - TOOTH EXTRACTION [None]
  - TYPE 2 DIABETES MELLITUS [None]
